FAERS Safety Report 23591935 (Version 1)
Quarter: 2024Q1

REPORT INFORMATION
  Report Type: Report from Study
  Country: US (occurrence: US)
  Receive Date: 20240304
  Receipt Date: 20240304
  Transmission Date: 20240410
  Serious: Yes (Other)
  Sender: FDA-Public Use
  Company Number: US-JNJFOC-20240265759

PATIENT

DRUGS (3)
  1. TREMFYA [Suspect]
     Active Substance: GUSELKUMAB
     Indication: Psoriasis
     Route: 058
  2. TREMFYA [Suspect]
     Active Substance: GUSELKUMAB
     Indication: Psoriatic arthropathy
  3. TREMFYA [Suspect]
     Active Substance: GUSELKUMAB

REACTIONS (6)
  - Pneumonia [Unknown]
  - Ankle fracture [Unknown]
  - Psoriatic arthropathy [Unknown]
  - Bronchitis [Unknown]
  - Psoriasis [Unknown]
  - Therapeutic response decreased [Unknown]
